FAERS Safety Report 6431281-0 (Version None)
Quarter: 2009Q4

REPORT INFORMATION
  Report Type: 
  Country: None (occurrence: None)
  Receive Date: 20091106
  Receipt Date: 20091102
  Transmission Date: 20100525
  Serious: Yes (Hospitalization)
  Sender: FDA-Public Use
  Company Number: IT-BAYER-200932285GPV

PATIENT
  Age: 64 Year
  Sex: Male

DRUGS (5)
  1. ASPIRIN [Suspect]
     Indication: DRUG USE FOR UNKNOWN INDICATION
     Dosage: UNIT DOSE: 100 MG
     Route: 048
     Dates: start: 19990101
  2. VOLTADVANCE [Suspect]
     Indication: NECK PAIN
     Dosage: TOTAL DAILY DOSE: 25 MG  UNIT DOSE: 25 MG
     Route: 048
     Dates: start: 19990901, end: 20090903
  3. RANITIDINE [Concomitant]
  4. OSIPINE [Concomitant]
     Route: 048
  5. ACEPLUS [Concomitant]
     Route: 048

REACTIONS (4)
  - DIZZINESS [None]
  - HYPERHIDROSIS [None]
  - MALAISE [None]
  - MELAENA [None]
